FAERS Safety Report 10225603 (Version 1)
Quarter: 2014Q2

REPORT INFORMATION
  Report Type: Spontaneous
  Country: US (occurrence: US)
  Receive Date: 20140609
  Receipt Date: 20140609
  Transmission Date: 20141212
  Serious: Yes (Other)
  Sender: FDA-Public Use
  Company Number: US-ASTELLAS-2013US012837

PATIENT
  Age: 60 Year
  Sex: Male

DRUGS (1)
  1. PROGRAF [Suspect]
     Indication: RENAL TRANSPLANT
     Route: 065

REACTIONS (11)
  - Drug hypersensitivity [Unknown]
  - Diabetes mellitus [Unknown]
  - Nocturia [Unknown]
  - Arthritis [Unknown]
  - Erectile dysfunction [Unknown]
  - Gout [Unknown]
  - Weight abnormal [Unknown]
  - Peripheral swelling [Unknown]
  - Hyperlipidaemia [Unknown]
  - Rash [Unknown]
  - Hypertension [Unknown]
